FAERS Safety Report 16314332 (Version 1)
Quarter: 2019Q2

REPORT INFORMATION
  Report Type: Report from Study
  Country: US (occurrence: US)
  Receive Date: 20190515
  Receipt Date: 20190515
  Transmission Date: 20190711
  Serious: No
  Sender: FDA-Public Use
  Company Number: PHEH2019US020274

PATIENT
  Sex: Female
  Weight: 91.61 kg

DRUGS (1)
  1. COSENTYX [Suspect]
     Active Substance: SECUKINUMAB
     Indication: PSORIASIS
     Dosage: 300 MG, EVERY OTHER WEEK
     Route: 058
     Dates: start: 20181019

REACTIONS (1)
  - Inappropriate schedule of product administration [Unknown]
